FAERS Safety Report 5511528-5 (Version None)
Quarter: 2007Q4

REPORT INFORMATION
  Report Type: 
  Country: None (occurrence: None)
  Receive Date: 20071109
  Receipt Date: 20071102
  Transmission Date: 20080405
  Serious: Yes (Disabling)
  Sender: FDA-Public Use
  Company Number: B0494553A

PATIENT
  Age: 42 Year
  Sex: Male

DRUGS (6)
  1. KIVEXA [Suspect]
     Indication: HIV INFECTION
     Dosage: 1TAB PER DAY
     Route: 048
     Dates: start: 20050909
  2. KALETRA [Suspect]
     Indication: HIV INFECTION
     Route: 048
     Dates: start: 20000215
  3. CEBUTID [Suspect]
     Indication: DRUG USE FOR UNKNOWN INDICATION
     Route: 048
     Dates: start: 20060324
  4. INEXIUM [Suspect]
     Indication: DRUG USE FOR UNKNOWN INDICATION
     Route: 048
     Dates: start: 20060324
  5. PEGASYS [Concomitant]
     Indication: HEPATITIS C
     Route: 065
     Dates: start: 20040101, end: 20050101
  6. COPEGUS [Concomitant]
     Indication: HEPATITIS C
     Route: 065
     Dates: start: 20040101, end: 20050101

REACTIONS (3)
  - CONDITION AGGRAVATED [None]
  - MACULOPATHY [None]
  - VISUAL ACUITY REDUCED [None]
